APPROVED DRUG PRODUCT: SYMPROIC
Active Ingredient: NALDEMEDINE TOSYLATE
Strength: EQ 0.2MG BASE
Dosage Form/Route: TABLET;ORAL
Application: N208854 | Product #001
Applicant: BIODELIVERY SCIENCES INTERNATIONAL INC
Approved: Mar 23, 2017 | RLD: Yes | RS: Yes | Type: RX

PATENTS:
Patent RE46375 | Expires: Oct 5, 2026
Patent RE46365 | Expires: Feb 24, 2031
Patent 9108975 | Expires: Nov 11, 2031
Patent 10952968 | Expires: May 13, 2033
Patent 12350377 | Expires: May 13, 2033